FAERS Safety Report 8459479-0 (Version None)
Quarter: 2012Q2

REPORT INFORMATION
  Report Type: 
  Country: None (occurrence: None)
  Receive Date: 20120622
  Receipt Date: 20120615
  Transmission Date: 20120825
  Serious: Yes (Other)
  Sender: FDA-Public Use
  Company Number: US-JNJFOC-20120609661

PATIENT
  Age: 30 Year
  Sex: Female
  Weight: 127.92 kg

DRUGS (3)
  1. NEUTROGENA T/GEL THERAPEUTIC SHAMPOO EXTRA STRENGTH [Suspect]
     Route: 061
     Dates: end: 20120612
  2. PREDNISONE TAB [Concomitant]
     Indication: PLATELET COUNT DECREASED
     Dosage: HALF OF THE PRODUCT
     Route: 065
  3. NEUTROGENA T/GEL THERAPEUTIC SHAMPOO EXTRA STRENGTH [Suspect]
     Indication: SEBORRHOEIC DERMATITIS
     Dosage: HALF A DOLLAR SIZE AMOUNT
     Route: 061

REACTIONS (4)
  - PRURITUS [None]
  - DANDRUFF [None]
  - PRODUCT CONTAMINATION PHYSICAL [None]
  - DRUG EFFECT DECREASED [None]
